FAERS Safety Report 6771079-7 (Version None)
Quarter: 2010Q2

REPORT INFORMATION
  Report Type: 
  Country: None (occurrence: None)
  Receive Date: 20100616
  Receipt Date: 20100602
  Transmission Date: 20101027
  Serious: Yes (Other)
  Sender: FDA-Public Use
  Company Number: ES-RANBAXY-2010RR-34533

PATIENT
  Age: 11 Year
  Sex: Male

DRUGS (5)
  1. ACETAMINOPHEN [Suspect]
     Indication: NASOPHARYNGITIS
     Dosage: 500 MG, UNK
     Route: 048
  2. TERMALGIN [Suspect]
     Indication: NASOPHARYNGITIS
  3. ANTALGIN [Concomitant]
  4. DIPYRONE [Concomitant]
  5. ACETYLSALICYLIC ACID [Concomitant]

REACTIONS (1)
  - ERYTHEMA MULTIFORME [None]
